FAERS Safety Report 25896228 (Version 1)
Quarter: 2025Q4

REPORT INFORMATION
  Report Type: Spontaneous
  Country: AU (occurrence: AU)
  Receive Date: 20251008
  Receipt Date: 20251008
  Transmission Date: 20260117
  Serious: Yes (Hospitalization)
  Sender: BAYER HEALTHCARE PHARMACEUTICALS INC.
  Company Number: AU-BAYER-2025A131857

PATIENT
  Age: 82 Year
  Sex: Female

DRUGS (1)
  1. ULTRAVIST [Suspect]
     Active Substance: IOPROMIDE
     Indication: Catheterisation cardiac
     Dosage: 50 ML, ONCE
     Route: 013
     Dates: start: 20251002, end: 20251002

REACTIONS (4)
  - Headache [Recovering/Resolving]
  - Visual impairment [Recovering/Resolving]
  - Blood pressure decreased [Recovering/Resolving]
  - Lymphadenopathy [Recovering/Resolving]

NARRATIVE: CASE EVENT DATE: 20251002
